FAERS Safety Report 5722927-0 (Version None)
Quarter: 2008Q2

REPORT INFORMATION
  Report Type: 
  Country: None (occurrence: None)
  Receive Date: 20080425
  Receipt Date: 20080417
  Transmission Date: 20081010
  Serious: Yes (Death, Hospitalization)
  Sender: FDA-Public Use
  Company Number: 141182

PATIENT
  Age: 56 Year
  Sex: Female

DRUGS (1)
  1. AVONEX [Suspect]
     Indication: MULTIPLE SCLEROSIS
     Dosage: 15 UG; QW; IM
     Route: 030
     Dates: start: 19990101, end: 20000705

REACTIONS (7)
  - COLONIC POLYP [None]
  - INFLUENZA LIKE ILLNESS [None]
  - POST PROCEDURAL PNEUMONIA [None]
  - PULMONARY HAEMORRHAGE [None]
  - RENAL IMPAIRMENT [None]
  - RESPIRATORY ARREST [None]
  - RESPIRATORY FAILURE [None]
